FAERS Safety Report 19450722 (Version 1)
Quarter: 2021Q2

REPORT INFORMATION
  Report Type: Spontaneous
  Country: US (occurrence: US)
  Receive Date: 20210622
  Receipt Date: 20210622
  Transmission Date: 20210717
  Serious: No
  Sender: FDA-Public Use
  Company Number: US-AMGEN INC.-USASP2021095351

PATIENT
  Sex: Female

DRUGS (1)
  1. AIMOVIG [Suspect]
     Active Substance: ERENUMAB-AOOE
     Indication: MIGRAINE
     Dosage: UNK
     Route: 065
     Dates: start: 2019

REACTIONS (6)
  - Fatigue [Not Recovered/Not Resolved]
  - Body temperature abnormal [Unknown]
  - Dry eye [Unknown]
  - Feeling abnormal [Not Recovered/Not Resolved]
  - Constipation [Unknown]
  - Dry skin [Unknown]
